FAERS Safety Report 12865079 (Version 1)
Quarter: 2016Q4

REPORT INFORMATION
  Report Type: Spontaneous
  Country: CN (occurrence: CN)
  Receive Date: 20161020
  Receipt Date: 20161020
  Transmission Date: 20170207
  Serious: Yes (Other)
  Sender: FDA-Public Use
  Company Number: CN-009507513-1610CHN004364

PATIENT
  Age: 36 Year
  Sex: Female

DRUGS (2)
  1. BETAMETHASONE DIPROPIONATE (+) BETAMETHASONE SODIUM PHOSPHATE [Suspect]
     Active Substance: BETAMETHASONE DIPROPIONATE\BETAMETHASONE SODIUM PHOSPHATE
     Indication: PEMPHIGUS
     Dosage: 0.7 MG PER WEEK
     Route: 026
  2. THALIDOMIDE [Concomitant]
     Active Substance: THALIDOMIDE
     Dosage: 75 MG, QD

REACTIONS (1)
  - Uterine haemorrhage [Recovered/Resolved]
